FAERS Safety Report 24327493 (Version 2)
Quarter: 2024Q3

REPORT INFORMATION
  Report Type: Spontaneous
  Country: GB (occurrence: GB)
  Receive Date: 20240917
  Receipt Date: 20240924
  Transmission Date: 20241017
  Serious: Yes (Other)
  Sender: HIKMA
  Company Number: GB-HIKMA PHARMACEUTICALS USA INC.-GB-H14001-24-08447

PATIENT
  Age: 73 Year
  Sex: Female
  Weight: 52 kg

DRUGS (3)
  1. LEVETIRACETAM [Suspect]
     Active Substance: LEVETIRACETAM
     Indication: Frontal lobe epilepsy
     Dosage: 250 MILLIGRAM TO BEGIN WITH AND TO BE INCREMENTALLY INCREASED EVERY FORTNIGHT
     Route: 065
  2. LEVETIRACETAM [Suspect]
     Active Substance: LEVETIRACETAM
     Dosage: NOT APPLICABLE (COMPANY^S SUSPECT PRODUCT NOT ADMINISTERED)
  3. LAMOTRIGINE [Concomitant]
     Active Substance: LAMOTRIGINE
     Indication: Frontal lobe epilepsy
     Dosage: INCREASING INCREMENTALLY ONE EVERY FORTNIGHT AND DECREASING THE OTHER FORTNIGHTLY
     Route: 065

REACTIONS (5)
  - Gastrointestinal pain [Recovered/Resolved]
  - Haematoma [Recovered/Resolved]
  - Nausea [Recovered/Resolved]
  - Liver function test increased [Recovered/Resolved with Sequelae]
  - Pain [Unknown]
